FAERS Safety Report 18696451 (Version 1)
Quarter: 2021Q1

REPORT INFORMATION
  Report Type: Other
  Country: US (occurrence: US)
  Receive Date: 20210104
  Receipt Date: 20210104
  Transmission Date: 20210419
  Serious: No
  Sender: FDA-Public Use
  Company Number: US-ROCHE-2683578

PATIENT
  Age: 53 Year
  Sex: Female

DRUGS (7)
  1. ARGATROBAN. [Concomitant]
     Active Substance: ARGATROBAN
     Dosage: 2 MG/KG/MIN
  2. HYDROXYCHLOROQUINE [Concomitant]
     Active Substance: HYDROXYCHLOROQUINE
  3. ALTEPLASE. [Suspect]
     Active Substance: ALTEPLASE
     Indication: COVID-19
     Route: 065
  4. HEPARIN [Concomitant]
     Active Substance: HEPARIN SODIUM
  5. ALTEPLASE. [Suspect]
     Active Substance: ALTEPLASE
     Indication: PULMONARY EMBOLISM
  6. ALTEPLASE. [Suspect]
     Active Substance: ALTEPLASE
     Indication: AORTIC THROMBOSIS
  7. AZITHROMYCIN ANHYDROUS. [Concomitant]
     Active Substance: AZITHROMYCIN ANHYDROUS

REACTIONS (3)
  - Intentional product use issue [Unknown]
  - Off label use [Unknown]
  - No adverse event [Unknown]
